FAERS Safety Report 8971955 (Version 2)
Quarter: 2013Q2

REPORT INFORMATION
  Report Type: Spontaneous
  Country: GB (occurrence: GB)
  Receive Date: 20121218
  Receipt Date: 20130408
  Transmission Date: 20140414
  Serious: Yes (Other)
  Sender: FDA-Public Use
  Company Number: GB-TEVA-375861ISR

PATIENT
  Age: 55 Year
  Sex: Male

DRUGS (9)
  1. SIMVASTATIN [Suspect]
     Indication: BLOOD CHOLESTEROL INCREASED
     Dosage: 40 MILLIGRAM DAILY; NIGHT
     Route: 065
     Dates: start: 20110613, end: 20120925
  2. AMLODIPINE [Interacting]
     Indication: HYPERTENSION
     Dosage: 5MG
     Route: 065
     Dates: end: 20120711
  3. AMLODIPINE [Interacting]
     Dosage: 10MG
     Route: 065
     Dates: end: 20120711
  4. RAMIPRIL [Suspect]
     Indication: HYPERTENSION
     Dosage: 2.5MG
     Route: 065
  5. RAMIPRIL [Suspect]
     Dosage: 5MG
     Route: 065
  6. RAMIPRIL [Suspect]
     Dosage: 10MG
     Route: 065
     Dates: end: 20120711
  7. LOSARTAN [Suspect]
     Indication: PRODUCT USED FOR UNKNOWN INDICATION
     Dosage: 100MG
     Route: 065
  8. LERCANIDIPINE [Suspect]
     Indication: PRODUCT USED FOR UNKNOWN INDICATION
     Dosage: 20MG
     Route: 065
  9. PRAVASTATIN [Suspect]
     Dates: end: 20121206

REACTIONS (16)
  - Gait disturbance [Unknown]
  - Dysstasia [Unknown]
  - Blood pressure increased [Unknown]
  - Mental impairment [Unknown]
  - Myalgia [Unknown]
  - Confusional state [Unknown]
  - Osteoarthritis [Unknown]
  - Feeling abnormal [Unknown]
  - Depressed mood [Unknown]
  - Throat irritation [Unknown]
  - Fatigue [Unknown]
  - Drug interaction [Unknown]
  - Product quality issue [Unknown]
  - Dyspnoea [Unknown]
  - Nightmare [Not Recovered/Not Resolved]
  - Cough [Unknown]
